FAERS Safety Report 9494730 (Version 1)
Quarter: 2013Q3

REPORT INFORMATION
  Report Type: Spontaneous
  Country: US (occurrence: US)
  Receive Date: 20130903
  Receipt Date: 20130903
  Transmission Date: 20140515
  Serious: No
  Sender: FDA-Public Use
  Company Number: US-PFIZER INC-2013251175

PATIENT
  Sex: Female

DRUGS (5)
  1. VANTIN [Suspect]
     Dosage: UNK
  2. RELPAX [Suspect]
     Dosage: UNK
  3. RITALIN [Suspect]
     Dosage: UNK
  4. AUGMENTIN [Suspect]
     Dosage: UNK
  5. AMITRIPTYLINE [Suspect]
     Dosage: UNK

REACTIONS (1)
  - Drug hypersensitivity [Unknown]
